FAERS Safety Report 10494432 (Version 1)
Quarter: 2014Q4

REPORT INFORMATION
  Report Type: Spontaneous
  Country: US (occurrence: US)
  Receive Date: 20141003
  Receipt Date: 20141003
  Transmission Date: 20150528
  Serious: No
  Sender: FDA-Public Use
  Company Number: US-ELI_LILLY_AND_COMPANY-US201409003456

PATIENT
  Age: 50 Year
  Sex: Male
  Weight: 94.79 kg

DRUGS (1)
  1. CIALIS [Suspect]
     Active Substance: TADALAFIL
     Indication: ERECTILE DYSFUNCTION
     Dosage: 20 MG, UNKNOWN
     Route: 065
     Dates: start: 20140815, end: 20140815

REACTIONS (2)
  - Headache [Not Recovered/Not Resolved]
  - Influenza like illness [Recovering/Resolving]

NARRATIVE: CASE EVENT DATE: 20140815
